FAERS Safety Report 15196847 (Version 1)
Quarter: 2018Q3

REPORT INFORMATION
  Report Type: Report from Study
  Country: US (occurrence: US)
  Receive Date: 20180725
  Receipt Date: 20180725
  Transmission Date: 20181010
  Serious: Yes (Hospitalization, Other)
  Sender: FDA-Public Use
  Company Number: US-BAYER-2018-138401

PATIENT
  Sex: Male

DRUGS (2)
  1. NIFEDIPIN [Concomitant]
     Active Substance: NIFEDIPINE
  2. NEXAVAR [Suspect]
     Active Substance: SORAFENIB
     Indication: CHRONIC HEPATITIS C
     Dosage: 400 MG, BID
     Route: 048
     Dates: start: 20180405, end: 2018

REACTIONS (4)
  - Product use in unapproved indication [None]
  - Off label use [None]
  - Hospitalisation [Not Recovered/Not Resolved]
  - Unevaluable event [None]

NARRATIVE: CASE EVENT DATE: 2018
